FAERS Safety Report 9738813 (Version 1)
Quarter: 2013Q4

REPORT INFORMATION
  Report Type: Spontaneous
  Country: US (occurrence: US)
  Receive Date: 20131209
  Receipt Date: 20131209
  Transmission Date: 20140711
  Serious: No
  Sender: FDA-Public Use
  Company Number: US-PFIZER INC-2013350577

PATIENT
  Age: 76 Year
  Sex: Female

DRUGS (2)
  1. LYRICA [Suspect]
     Indication: NERVE DEGENERATION
     Dosage: 75 MG, 2X/DAY
     Route: 048
  2. PRAVASTATIN [Interacting]
     Dosage: UNK

REACTIONS (9)
  - Drug interaction [Unknown]
  - Discomfort [Unknown]
  - Middle insomnia [Unknown]
  - Pain in extremity [Unknown]
  - Burning sensation [Unknown]
  - Agitation [Unknown]
  - Low density lipoprotein increased [Unknown]
  - Anaemia [Unknown]
  - Blood iron decreased [Unknown]
